FAERS Safety Report 9267273 (Version 1)
Quarter: 2013Q2

REPORT INFORMATION
  Report Type: Spontaneous
  Country: US (occurrence: US)
  Receive Date: 20130502
  Receipt Date: 20130502
  Transmission Date: 20140414
  Serious: No
  Sender: FDA-Public Use
  Company Number: US-BAYER-2013-054673

PATIENT
  Sex: Female

DRUGS (1)
  1. ALEVE CAPLET [Suspect]
     Indication: ARTHRITIS
     Dosage: UNK UNK, QD
     Route: 048

REACTIONS (3)
  - Joint swelling [None]
  - Drug ineffective [None]
  - Incorrect dose administered [Not Recovered/Not Resolved]
